FAERS Safety Report 19075569 (Version 2)
Quarter: 2021Q2

REPORT INFORMATION
  Report Type: Report from Study
  Country: US (occurrence: US)
  Receive Date: 20210330
  Receipt Date: 20210407
  Transmission Date: 20210717
  Serious: Yes (Hospitalization)
  Sender: FDA-Public Use
  Company Number: US-JNJFOC-20210340673

PATIENT
  Age: 29 Year
  Sex: Female
  Weight: 90.1 kg

DRUGS (5)
  1. EPOPROSTENOL SODIUM. [Suspect]
     Active Substance: EPOPROSTENOL SODIUM
     Indication: PULMONARY ARTERIAL HYPERTENSION
     Route: 042
  2. ELIQUIS [Concomitant]
     Active Substance: APIXABAN
  3. LETAIRIS [Concomitant]
     Active Substance: AMBRISENTAN
  4. EPOPROSTENOL SODIUM. [Suspect]
     Active Substance: EPOPROSTENOL SODIUM
     Route: 042
  5. ADEMPAS [Concomitant]
     Active Substance: RIOCIGUAT

REACTIONS (4)
  - Anaemia [Unknown]
  - Abdominal pain [Unknown]
  - Abdominal distension [Unknown]
  - Asthenia [Unknown]

NARRATIVE: CASE EVENT DATE: 20210318
